FAERS Safety Report 16349850 (Version 7)
Quarter: 2019Q3

REPORT INFORMATION
  Report Type: Report from Study
  Country: TR (occurrence: TR)
  Receive Date: 20190523
  Receipt Date: 20190918
  Transmission Date: 20191004
  Serious: Yes (Other)
  Sender: FDA-Public Use
  Company Number: TR-PFIZER INC-2019203874

PATIENT
  Age: 41 Year
  Sex: Male
  Weight: 60.3 kg

DRUGS (5)
  1. PAROL [Suspect]
     Active Substance: ACETAMINOPHEN
     Indication: ANKYLOSING SPONDYLITIS
     Dosage: 500 MG, 1X/DAY
     Route: 048
     Dates: start: 201806, end: 20190510
  2. TOFACITINIB CITRATE [Suspect]
     Active Substance: TOFACITINIB CITRATE
     Indication: ANKYLOSING SPONDYLITIS
     Dosage: UNK, 2X/DAY
     Route: 048
     Dates: start: 20190102, end: 20190422
  3. INH [Suspect]
     Active Substance: ISONIAZID
     Indication: TUBERCULOSIS
     Dosage: 300 MG, 2X/DAY
     Route: 048
     Dates: start: 201810, end: 20190510
  4. ETOL FORT [Suspect]
     Active Substance: ETODOLAC
     Indication: ANKYLOSING SPONDYLITIS
     Dosage: 400 MG, 1X/DAY
     Route: 048
     Dates: start: 201808, end: 20190510
  5. ARVELES [Suspect]
     Active Substance: DEXKETOPROFEN
     Indication: ANKYLOSING SPONDYLITIS
     Dosage: 25 MG, 1X/DAY
     Route: 048
     Dates: start: 201711, end: 20190510

REACTIONS (1)
  - Hypoacusis [Recovered/Resolved with Sequelae]

NARRATIVE: CASE EVENT DATE: 20190510
